FAERS Safety Report 9116317 (Version 1)
Quarter: 2013Q1

REPORT INFORMATION
  Report Type: Spontaneous
  Country: AR (occurrence: AR)
  Receive Date: 20130225
  Receipt Date: 20130225
  Transmission Date: 20140127
  Serious: Yes (Other)
  Sender: FDA-Public Use
  Company Number: AR-PFIZER INC-2013063770

PATIENT
  Age: 81 Year
  Sex: Female

DRUGS (1)
  1. DALACIN [Suspect]
     Indication: ERYSIPELAS
     Dosage: 300 MG, 2X/DAY
     Route: 048
     Dates: start: 201212

REACTIONS (1)
  - Oesophageal disorder [Not Recovered/Not Resolved]
